FAERS Safety Report 8278002-7 (Version None)
Quarter: 2012Q2

REPORT INFORMATION
  Report Type: 
  Country: None (occurrence: None)
  Receive Date: 20120412
  Receipt Date: 20120406
  Transmission Date: 20120825
  Serious: Yes (Other)
  Sender: FDA-Public Use
  Company Number: US-PFIZER INC-2012073577

PATIENT
  Sex: Female

DRUGS (1)
  1. IBUPROFEN TABLETS [Suspect]
     Indication: PAIN
     Dosage: 800 MG ONCE
     Route: 048
     Dates: start: 20020101

REACTIONS (3)
  - DYSPNOEA [None]
  - FOOD INTERACTION [None]
  - PHARYNGEAL OEDEMA [None]
